FAERS Safety Report 25313530 (Version 1)
Quarter: 2025Q2

REPORT INFORMATION
  Report Type: Spontaneous
  Country: US (occurrence: None)
  Receive Date: 20250514
  Receipt Date: 20250514
  Transmission Date: 20250716
  Serious: Yes (Hospitalization)
  Sender: FDA-CTU
  Company Number: None

PATIENT
  Sex: Male

DRUGS (7)
  1. LENALIDOMIDE [Suspect]
     Active Substance: LENALIDOMIDE
     Indication: Plasma cell myeloma in remission
     Dosage: FREQUENCY : DAILY;?
     Route: 048
     Dates: start: 20240124
  2. ASPIRIN LOW EC [Concomitant]
  3. CALCIUM CIT [Concomitant]
  4. FERROUS SULFATE [Concomitant]
     Active Substance: FERROUS SULFATE
  5. TYLENOL [Concomitant]
     Active Substance: ACETAMINOPHEN
  6. VITAMIN B12 [Concomitant]
     Active Substance: CYANOCOBALAMIN
  7. XGEVA [Concomitant]
     Active Substance: DENOSUMAB

REACTIONS (2)
  - Hospitalisation [None]
  - Intentional dose omission [None]
